FAERS Safety Report 4598345-8 (Version None)
Quarter: 2005Q1

REPORT INFORMATION
  Report Type: 
  Country: None (occurrence: None)
  Receive Date: 20050301
  Receipt Date: 20050301
  Transmission Date: 20050727
  Serious: Yes (Other)
  Sender: FDA-Public Use
  Company Number: None

PATIENT
  Age: 40 Year
  Sex: Female
  Weight: 91.173 kg

DRUGS (1)
  1. DURAGESIC-50 [Suspect]
     Dosage: 1 PATCH Q 3 DAYS
     Dates: start: 20050125, end: 20050202

REACTIONS (2)
  - DRUG EFFECT DECREASED [None]
  - MEDICATION ERROR [None]
